FAERS Safety Report 5519544-4 (Version None)
Quarter: 2007Q4

REPORT INFORMATION
  Report Type: 
  Country: None (occurrence: None)
  Receive Date: 20071114
  Receipt Date: 20071026
  Transmission Date: 20080405
  Serious: Yes (Hospitalization)
  Sender: FDA-Public Use
  Company Number: 008#2#2007-00008

PATIENT
  Age: 71 Year
  Sex: Female

DRUGS (7)
  1. ALPROSTADIL [Suspect]
     Indication: PERIPHERAL ISCHAEMIA
     Dosage: 60 MCG (60 MG 1 IN 1 DAY(S)) INTRAVENOUS DRIP
     Route: 041
     Dates: start: 20071023, end: 20071023
  2. GENTAMICIN [Concomitant]
  3. DOLARGAN (PETHIDINE HYDROCHLORIDE) [Concomitant]
  4. POLFILIN (PENTOXIFYLLINE) [Concomitant]
  5. SADAMIN (XANTINOL NICOTINATE) [Concomitant]
  6. ENOXAPARIN SODIUM [Concomitant]
  7. MIXTARD (INSULIN INJECTION, ISOPHANE) [Concomitant]

REACTIONS (5)
  - ANXIETY [None]
  - CHEST PAIN [None]
  - DYSPNOEA [None]
  - FEELING ABNORMAL [None]
  - PALPITATIONS [None]
